FAERS Safety Report 16248199 (Version 2)
Quarter: 2019Q2

REPORT INFORMATION
  Report Type: Spontaneous
  Country: GB (occurrence: GB)
  Receive Date: 20190428
  Receipt Date: 20190521
  Transmission Date: 20190711
  Serious: Yes (Hospitalization, Other)
  Sender: FDA-Public Use
  Company Number: GB-CELLTRION INC.-2019GB020383

PATIENT

DRUGS (7)
  1. IMMUNOGLOBULIN (IMMUNOGLOBULIN HUMAN NORMAL) [Concomitant]
     Active Substance: HUMAN IMMUNOGLOBULIN G
     Indication: IMMUNODEFICIENCY COMMON VARIABLE
     Dosage: UNK
  2. IMMUNOGLOBULIN (IMMUNOGLOBULIN HUMAN NORMAL) [Concomitant]
     Active Substance: HUMAN IMMUNOGLOBULIN G
     Indication: BRONCHIECTASIS
     Dosage: UNK
     Route: 042
  3. CYCLOPHOSPHAMIDE. [Suspect]
     Active Substance: CYCLOPHOSPHAMIDE
     Indication: CHRONIC LYMPHOCYTIC LEUKAEMIA
     Dosage: PART OF FCR-LITE CHEMOTHERAPY
     Route: 065
  4. BISOPROLOL [Concomitant]
     Active Substance: BISOPROLOL
     Indication: PRODUCT USED FOR UNKNOWN INDICATION
     Dosage: UNK
     Route: 065
  5. ASPIRIN. [Concomitant]
     Active Substance: ASPIRIN
     Indication: PRODUCT USED FOR UNKNOWN INDICATION
     Dosage: UNK
     Route: 065
  6. FLUDARABINE [Suspect]
     Active Substance: FLUDARABINE PHOSPHATE
     Indication: CHRONIC LYMPHOCYTIC LEUKAEMIA
     Dosage: PART OF FCR-LITE CHEMOTHERAPY;THERAPY WAS FINISHED ONE YEAR PRIOR TO THE CURRENT PRESENTATION
     Route: 065
  7. RITUXIMAB (UNKNOWN) [Suspect]
     Active Substance: RITUXIMAB
     Indication: CHRONIC LYMPHOCYTIC LEUKAEMIA
     Dosage: PART OF FCR-LITE CHEMOTHERAPY; THERAPY WAS FINISHED ONE YEAR PRIOR TO THE CURRENT PRESENTATION
     Route: 065

REACTIONS (13)
  - Aphasia [Recovering/Resolving]
  - Hypertonia [Recovering/Resolving]
  - Facial paresis [Recovering/Resolving]
  - Tremor [Recovering/Resolving]
  - Dysdiadochokinesis [Recovering/Resolving]
  - Cognitive disorder [Recovering/Resolving]
  - Past-pointing [Recovering/Resolving]
  - Facial paralysis [Recovering/Resolving]
  - JC virus infection [Recovering/Resolving]
  - Hemiparesis [Recovering/Resolving]
  - Progressive multifocal leukoencephalopathy [Recovering/Resolving]
  - Extensor plantar response [Recovering/Resolving]
  - Urinary incontinence [Recovering/Resolving]
